FAERS Safety Report 8906488 (Version 1)
Quarter: 2012Q4

REPORT INFORMATION
  Report Type: Spontaneous
  Country: GB (occurrence: None)
  Receive Date: 20121108
  Receipt Date: 20121108
  Transmission Date: 20130627
  Serious: Yes (Hospitalization)
  Sender: FDA-Public Use
  Company Number: 2012MA012978

PATIENT
  Age: 17 Year
  Sex: Male

DRUGS (2)
  1. CITALOPRAM HYDROBROMIDE [Suspect]
     Indication: DRUG USE FOR UNKNOWN  INDICATION
     Route: 048
     Dates: start: 20111018, end: 20120917
  2. QUETIAPINE [Concomitant]

REACTIONS (1)
  - Activation syndrome [None]
